FAERS Safety Report 17567764 (Version 7)
Quarter: 2020Q3

REPORT INFORMATION
  Report Type: Report from Study
  Country: US (occurrence: US)
  Receive Date: 20200320
  Receipt Date: 20200722
  Transmission Date: 20201102
  Serious: Yes (Hospitalization)
  Sender: FDA-Public Use
  Company Number: US-ACTELION-A-US2019-198323

PATIENT
  Sex: Female
  Weight: 79.37 kg

DRUGS (8)
  1. VELETRI [Suspect]
     Active Substance: EPOPROSTENOL
     Dosage: 38.33 NG/KG, PER MIN
     Route: 042
  2. ADCIRCA [Concomitant]
     Active Substance: TADALAFIL
  3. VELETRI [Suspect]
     Active Substance: EPOPROSTENOL
     Dosage: 12.5 NG/KG, PER MIN
     Route: 042
  4. VELETRI [Suspect]
     Active Substance: EPOPROSTENOL
     Dosage: 28 NG/KG, PER MIN
     Route: 042
  5. VELETRI [Suspect]
     Active Substance: EPOPROSTENOL
     Dosage: 6.67 NG/KG, PER MIN
     Route: 042
  6. VELETRI [Suspect]
     Active Substance: EPOPROSTENOL
     Dosage: 25.83 NG/KG, PER MIN
     Route: 042
  7. VELETRI [Suspect]
     Active Substance: EPOPROSTENOL
     Dosage: 7.71 NG/KG, PER MIN
     Route: 042
  8. VELETRI [Suspect]
     Active Substance: EPOPROSTENOL
     Indication: PULMONARY ARTERIAL HYPERTENSION
     Dosage: 28.33 NG/KG, PER MIN
     Route: 042

REACTIONS (13)
  - Pancreatitis [Unknown]
  - Exposure during pregnancy [Unknown]
  - Headache [Not Recovered/Not Resolved]
  - Infusion site irritation [Unknown]
  - Infusion site erythema [Unknown]
  - Thrombocytopenia [Unknown]
  - Cholecystectomy [Unknown]
  - Pain in jaw [Not Recovered/Not Resolved]
  - Diarrhoea [Unknown]
  - Premature delivery [Unknown]
  - Abdominal pain upper [Unknown]
  - Infusion site pruritus [Unknown]
  - Caesarean section [Unknown]
